FAERS Safety Report 9449967 (Version 1)
Quarter: 2013Q3

REPORT INFORMATION
  Report Type: Spontaneous
  Country: FR (occurrence: FR)
  Receive Date: 20130809
  Receipt Date: 20130809
  Transmission Date: 20140515
  Serious: Yes (Other)
  Sender: FDA-Public Use
  Company Number: FR-ROCHE-1259528

PATIENT
  Age: 21 Year
  Sex: Female

DRUGS (5)
  1. OMALIZUMAB [Suspect]
     Indication: OFF LABEL USE
     Dosage: 1ST INJECTION
     Route: 058
  2. OMALIZUMAB [Suspect]
     Indication: CHRONIC SPONTANEOUS URTICARIA
     Dosage: 2ND INJECTION
     Route: 058
  3. OMALIZUMAB [Suspect]
     Dosage: 3RD INJECTION
     Route: 058
  4. OMALIZUMAB [Suspect]
     Dosage: 4TH INJECTION
     Route: 058
  5. OMALIZUMAB [Suspect]
     Dosage: 5TH INJECTION
     Route: 058

REACTIONS (3)
  - Blood immunoglobulin E increased [Unknown]
  - Urticaria chronic [Recovered/Resolved]
  - Injection site erythema [Unknown]
